FAERS Safety Report 24056661 (Version 1)
Quarter: 2024Q3

REPORT INFORMATION
  Report Type: Spontaneous
  Country: CN (occurrence: CN)
  Receive Date: 20240705
  Receipt Date: 20240705
  Transmission Date: 20241017
  Serious: Yes (Other)
  Sender: ELI LILLY AND CO
  Company Number: CN-ELI_LILLY_AND_COMPANY-CN202406017683

PATIENT
  Sex: Female

DRUGS (2)
  1. ABEMACICLIB [Suspect]
     Active Substance: ABEMACICLIB
     Indication: Product used for unknown indication
     Dosage: UNK UNK, UNKNOWN
     Route: 048
  2. ABEMACICLIB [Suspect]
     Active Substance: ABEMACICLIB
     Dosage: UNK UNK, UNKNOWN (REDUCED DOSE)
     Route: 048

REACTIONS (1)
  - Haemoglobin decreased [Recovering/Resolving]
